FAERS Safety Report 8576791-5 (Version None)
Quarter: 2012Q3

REPORT INFORMATION
  Report Type: 
  Country: None (occurrence: None)
  Receive Date: 20120807
  Receipt Date: 20120801
  Transmission Date: 20120928
  Serious: Yes (Hospitalization, Other)
  Sender: FDA-Public Use
  Company Number: US-AMGEN-KDC426647

PATIENT
  Age: 55 Year
  Sex: Male
  Weight: 106.82 kg

DRUGS (3)
  1. PANITUMUMAB [Suspect]
     Indication: PANCREATIC CARCINOMA
     Dosage: 854 MG, UNK
     Route: 042
     Dates: start: 20100630
  2. ERLOTINIB HYDROCHLORIDE [Concomitant]
     Dosage: 2400 MG, UNK
     Route: 048
     Dates: start: 20100630
  3. GEMCITABINE HYDROCHLORIDE [Concomitant]
     Dosage: 6960 MG, UNK
     Route: 042
     Dates: start: 20100630

REACTIONS (3)
  - THROMBOSIS [None]
  - EMBOLISM [None]
  - HYPERGLYCAEMIA [None]
